FAERS Safety Report 8634068 (Version 2)
Quarter: 2013Q1

REPORT INFORMATION
  Report Type: Spontaneous
  Country: JP (occurrence: None)
  Receive Date: 20120611
  Receipt Date: 20121214
  Transmission Date: 20140127
  Serious: Yes (Other)
  Sender: FDA-Public Use
  Company Number: ADR-2011-10120

PATIENT
  Age: 39 Year
  Sex: Male
  Weight: 64 kg

DRUGS (1)
  1. BACLOFEN [Suspect]
     Indication: MUSCLE SPASTICITY
     Dosage: 8.0 MCG/DAY

REACTIONS (3)
  - Device leakage [None]
  - Wound dehiscence [None]
  - Wound infection staphylococcal [None]
